FAERS Safety Report 9729118 (Version 1)
Quarter: 2013Q4

REPORT INFORMATION
  Report Type: Spontaneous
  Country: DE (occurrence: DE)
  Receive Date: 20131204
  Receipt Date: 20131204
  Transmission Date: 20140711
  Serious: Yes (Hospitalization, Other)
  Sender: FDA-Public Use
  Company Number: DE-PFIZER INC-2013337247

PATIENT
  Age: 56 Year
  Sex: Male

DRUGS (23)
  1. CANDESARTAN CILEXETIL [Suspect]
     Dosage: 32 MG, DAILY
     Route: 048
     Dates: start: 20121120
  2. INSPRA [Interacting]
     Dosage: 25 MG, DAILY, SINCE SOME MONTHS
     Route: 048
  3. VENLAFAXINE HCL [Interacting]
     Dosage: 37.5 MG, DAILY
     Route: 048
     Dates: start: 20121205, end: 20121218
  4. VENLAFAXINE HCL [Interacting]
     Dosage: 75 MG, DAILY
     Route: 048
     Dates: start: 20121219, end: 20121219
  5. VENLAFAXINE HCL [Interacting]
     Dosage: 150 MG, DAILY
     Route: 048
     Dates: start: 20121220
  6. QUETIAPIN [Interacting]
     Dosage: 50 MG, DAILY
     Route: 048
     Dates: start: 20121206, end: 20121210
  7. QUETIAPIN [Interacting]
     Dosage: 100 MG, DAILY
     Route: 048
     Dates: start: 20121211, end: 20121219
  8. QUETIAPIN [Interacting]
     Dosage: 50 MG, DAILY
     Route: 048
     Dates: start: 20130103, end: 20130109
  9. QUETIAPIN [Interacting]
     Dosage: 75 MG, DAILY
     Route: 048
     Dates: start: 20130110, end: 20130114
  10. QUETIAPIN [Interacting]
     Dosage: 100 MG, DAILY
     Route: 048
     Dates: start: 20130115
  11. LEVODOPA [Interacting]
     Dosage: 200 MG, DAILY
     Route: 048
     Dates: start: 20121213, end: 20121216
  12. LEVODOPA [Interacting]
     Dosage: 375 MG, DAILY
     Route: 048
     Dates: start: 20121217
  13. METOPROLOL [Interacting]
     Dosage: 47.5 MG, DAILY SINCE SOME MONTHS
     Route: 048
  14. TORASEMID [Interacting]
     Dosage: 10 MG, DAILY SINCE SOME MONTHS
     Route: 048
  15. EZETROL [Concomitant]
     Indication: LIPIDS INCREASED
     Dosage: 10 MG, DAILY; SINCE SOME MONTHS
     Route: 048
  16. ZOPICLONE [Concomitant]
     Dosage: 7.5 MG, DAILY
     Route: 048
     Dates: start: 20121205, end: 20130116
  17. ZOPICLONE [Concomitant]
     Dosage: 3.75 MG, DAILY
     Route: 048
     Dates: start: 20130117, end: 20130121
  18. SIMVASTATIN [Concomitant]
     Indication: LIPIDS INCREASED
     Dosage: 20 MG, DAILY, SINCE SOME MONTHS
     Route: 048
  19. PANTOPRAZOLE [Concomitant]
     Indication: GASTROINTESTINAL DISORDER
     Dosage: 20 MG, DAILY, SINCE SOME MONTHS
     Route: 048
  20. ASS [Concomitant]
     Indication: ANALGESIC THERAPY
     Dosage: 100 MG, DAILY, SINCE SOME MONTHS
     Route: 048
  21. ASS [Concomitant]
     Indication: RHEUMATIC DISORDER
  22. METFORMIN HYDROCHLORIDE [Concomitant]
     Indication: DIABETES MELLITUS
     Dosage: 1000 MG, DAILY, SINCE SOME MONTHS
     Route: 048
  23. INSULIN [Concomitant]
     Indication: DIABETES MELLITUS
     Dosage: 18 IU, SINCE SOME MONTHS
     Route: 058

REACTIONS (4)
  - Drug interaction [Recovered/Resolved]
  - Circulatory collapse [Recovered/Resolved]
  - Hypertension [Unknown]
  - Hypertensive crisis [Unknown]
